FAERS Safety Report 4309774-1 (Version None)
Quarter: 2004Q1

REPORT INFORMATION
  Report Type: 
  Country: None (occurrence: None)
  Receive Date: 20040301
  Receipt Date: 20030723
  Transmission Date: 20041129
  Serious: Yes (Other)
  Sender: FDA-Public Use
  Company Number: US_030695518

PATIENT
  Age: 62 Year
  Sex: Female

DRUGS (5)
  1. PERMAX [Suspect]
     Indication: PARKINSON'S DISEASE
     Dosage: 1.75 MG/4 DAY
  2. SINEMET [Concomitant]
  3. MIRAPEX (MIRAPEX) [Concomitant]
  4. AMANTADINE HCL [Concomitant]
  5. REQUIP [Concomitant]

REACTIONS (6)
  - MITRAL VALVE DISEASE [None]
  - MITRAL VALVE INCOMPETENCE [None]
  - MITRAL VALVE PROLAPSE [None]
  - PRESCRIBED OVERDOSE [None]
  - TRICUSPID VALVE DISEASE [None]
  - TRICUSPID VALVE INCOMPETENCE [None]
